FAERS Safety Report 5398135-2 (Version None)
Quarter: 2007Q3

REPORT INFORMATION
  Report Type: 
  Country: None (occurrence: None)
  Receive Date: 20070726
  Receipt Date: 20070720
  Transmission Date: 20080115
  Serious: Yes (Other)
  Sender: FDA-Public Use
  Company Number: CN-PFIZER INC-2007048782

PATIENT
  Age: 67 Year
  Sex: Male

DRUGS (7)
  1. ESTRACYT [Suspect]
     Indication: PROSTATE CANCER STAGE IV
     Route: 048
  2. BISPHOSPHONATES [Concomitant]
  3. CALCIUM CHLORIDE [Concomitant]
  4. VITAMIN D [Concomitant]
  5. VITAMIN B [Concomitant]
  6. IMMUNOSUPPRESSIVE AGENTS [Concomitant]
  7. DEXAMETHASONE 0.5MG TAB [Concomitant]
     Dates: start: 20070101

REACTIONS (3)
  - GASTROINTESTINAL DISORDER [None]
  - OEDEMA [None]
  - WHITE BLOOD CELL COUNT INCREASED [None]
